FAERS Safety Report 8962503 (Version 1)
Quarter: 2012Q4

REPORT INFORMATION
  Report Type: Spontaneous
  Country: US (occurrence: None)
  Receive Date: 20121211
  Receipt Date: 20121211
  Transmission Date: 20130627
  Serious: No
  Sender: FDA-Public Use
  Company Number: None

PATIENT
  Age: 72 Year
  Sex: Male
  Weight: 83.92 kg

DRUGS (1)
  1. EYLEA [Suspect]
     Indication: WET MACULAR DEGENERATION
     Dates: start: 20120804, end: 20121126

REACTIONS (4)
  - Injection site reaction [None]
  - Eye pain [None]
  - Eye swelling [None]
  - Erythema [None]
